FAERS Safety Report 14828648 (Version 2)
Quarter: 2018Q2

REPORT INFORMATION
  Report Type: Spontaneous
  Country: TW (occurrence: TW)
  Receive Date: 20180430
  Receipt Date: 20180508
  Transmission Date: 20180711
  Serious: Yes (Other)
  Sender: FDA-Public Use
  Company Number: PHHY2018TW069738

PATIENT
  Sex: Female

DRUGS (1)
  1. ACLASTA [Suspect]
     Active Substance: ZOLEDRONIC ACID
     Indication: PRODUCT USED FOR UNKNOWN INDICATION
     Dosage: 5 MG, ONCE/SINGLE
     Route: 042

REACTIONS (3)
  - Toothache [Not Recovered/Not Resolved]
  - Dental caries [Not Recovered/Not Resolved]
  - Gingival pain [Recovered/Resolved]
